FAERS Safety Report 6084420-8 (Version None)
Quarter: 2009Q1

REPORT INFORMATION
  Report Type: 
  Country: None (occurrence: None)
  Receive Date: 20090219
  Receipt Date: 20090211
  Transmission Date: 20090719
  Serious: Yes (Life-Threatening, Hospitalization)
  Sender: FDA-Public Use
  Company Number: B0555544A

PATIENT
  Age: 66 Year
  Sex: Female
  Weight: 68.5 kg

DRUGS (5)
  1. LAPATINIB [Suspect]
     Indication: BREAST CANCER
     Dosage: 1000MG PER DAY
     Route: 048
     Dates: start: 20081210
  2. TRASTUZUMAB [Suspect]
     Indication: BREAST CANCER
     Dosage: 6MGK EVERY 3 WEEKS
     Route: 042
     Dates: start: 20081210
  3. ZOCOR [Concomitant]
     Indication: HYPERCHOLESTEROLAEMIA
     Dosage: 20MG UNKNOWN
     Route: 048
     Dates: start: 20081206
  4. LEVOTHYROXINE SODIUM [Concomitant]
     Indication: HYPOTHYROIDISM
     Dosage: 150MG UNKNOWN
     Route: 048
     Dates: start: 19980101
  5. EMCONCOR [Concomitant]
     Indication: HYPERTENSION
     Route: 048
     Dates: start: 19950101

REACTIONS (8)
  - COAGULOPATHY [None]
  - DECREASED ACTIVITY [None]
  - HEPATIC STEATOSIS [None]
  - MALAISE [None]
  - MOBILITY DECREASED [None]
  - MUSCULAR WEAKNESS [None]
  - PHLEBITIS [None]
  - PULMONARY EMBOLISM [None]
